FAERS Safety Report 7069099-0 (Version None)
Quarter: 2010Q4

REPORT INFORMATION
  Report Type: 
  Country: None (occurrence: None)
  Receive Date: 20101028
  Receipt Date: 20101022
  Transmission Date: 20110411
  Serious: Yes (Hospitalization)
  Sender: FDA-Public Use
  Company Number: A0796740A

PATIENT
  Age: 58 Year
  Sex: Female
  Weight: 88.6 kg

DRUGS (10)
  1. AVANDIA [Suspect]
     Indication: TYPE 2 DIABETES MELLITUS
     Dosage: 4MG PER DAY
     Route: 048
     Dates: start: 20030918, end: 20060901
  2. ALBUTEROL [Concomitant]
  3. AMARYL [Concomitant]
  4. AMITRIPTYLINE HCL [Concomitant]
  5. AZMACORT [Concomitant]
  6. BISOPROLOL FUMARATE [Concomitant]
  7. CRESTOR [Concomitant]
  8. GLUCOPHAGE [Concomitant]
  9. HYZAAR [Concomitant]
  10. PREMARIN [Concomitant]
     Dates: end: 20060907

REACTIONS (3)
  - ARTERIAL OCCLUSIVE DISEASE [None]
  - CARDIAC DISORDER [None]
  - CORONARY ARTERY DISEASE [None]
